FAERS Safety Report 5423981-6 (Version None)
Quarter: 2007Q3

REPORT INFORMATION
  Report Type: 
  Country: None (occurrence: None)
  Receive Date: 20070727
  Receipt Date: 20060918
  Transmission Date: 20080115
  Serious: Yes (Other)
  Sender: FDA-Public Use
  Company Number: THYM-11056

PATIENT
  Age: 16 Year
  Sex: Male

DRUGS (3)
  1. THYMOGLOBULIN [Suspect]
     Indication: BONE MARROW TRANSPLANT
     Dates: start: 20060814, end: 20060815
  2. METHYLPREDNISOLONE 16MG TAB [Concomitant]
  3. BENADRYL [Concomitant]

REACTIONS (1)
  - DYSPNOEA [None]
